FAERS Safety Report 14938478 (Version 1)
Quarter: 2018Q2

REPORT INFORMATION
  Report Type: Report from Study
  Country: US (occurrence: MX)
  Receive Date: 20180525
  Receipt Date: 20180525
  Transmission Date: 20180711
  Serious: Yes (Hospitalization, Other)
  Sender: FDA-Public Use
  Company Number: US-SUNOVION-2018SUN002091

PATIENT
  Sex: Female

DRUGS (7)
  1. INDACATEROL [Suspect]
     Active Substance: INDACATEROL
     Indication: ASTHMA
     Dosage: 1 DF, HS
     Route: 055
  2. XARELTO [Concomitant]
     Active Substance: RIVAROXABAN
     Dosage: 20 MG, UNK
  3. MIFLONIDE [Suspect]
     Active Substance: BUDESONIDE
     Dosage: 400 ?G, QD  REGIMEN #2
     Route: 055
  4. MIFLONIDE [Suspect]
     Active Substance: BUDESONIDE
     Dosage: 600 MG, QD REGIMEN #3
     Route: 055
  5. MIFLONIDE [Suspect]
     Active Substance: BUDESONIDE
     Indication: ASTHMA
     Dosage: 200 ?G, QD REGIMEN #1
     Route: 055
  6. COMBIVENT [Concomitant]
     Active Substance: ALBUTEROL SULFATE\IPRATROPIUM BROMIDE
     Dosage: UNKNOWN
  7. ELIQUIS [Concomitant]
     Active Substance: APIXABAN
     Dosage: 0.5 MG, UNK
     Route: 065

REACTIONS (3)
  - Pulmonary thrombosis [Recovered/Resolved with Sequelae]
  - Product use in unapproved indication [Unknown]
  - Asthma [Unknown]
